FAERS Safety Report 6914062-0 (Version None)
Quarter: 2010Q3

REPORT INFORMATION
  Report Type: 
  Country: None (occurrence: None)
  Receive Date: 20100809
  Receipt Date: 20100803
  Transmission Date: 20110219
  Serious: Yes (Life-Threatening, Other)
  Sender: FDA-Public Use
  Company Number: PHHY2010BE43841

PATIENT
  Sex: Male

DRUGS (1)
  1. METHERGINE [Suspect]
     Dosage: 7 X 15 DROPS
     Dates: start: 20100630, end: 20100706

REACTIONS (6)
  - COMA [None]
  - DRUG TOXICITY [None]
  - HYPERTENSION [None]
  - OLIGURIA [None]
  - VOMITING [None]
  - WRONG DRUG ADMINISTERED [None]
